FAERS Safety Report 6110369-8 (Version None)
Quarter: 2009Q1

REPORT INFORMATION
  Report Type: 
  Country: None (occurrence: None)
  Receive Date: 20090310
  Receipt Date: 20090309
  Transmission Date: 20090719
  Serious: Yes (Hospitalization)
  Sender: FDA-Public Use
  Company Number: MX-PFIZER INC-2006001671

PATIENT

DRUGS (3)
  1. BLINDED *EFAVIRENZ [Suspect]
     Indication: HIV TEST POSITIVE
     Route: 048
     Dates: start: 20051213
  2. BLINDED *PLACEBO [Suspect]
     Indication: HIV TEST POSITIVE
     Route: 048
     Dates: start: 20051213
  3. BLINDED MARAVIROC [Suspect]
     Indication: HIV TEST POSITIVE
     Route: 048
     Dates: start: 20051213

REACTIONS (1)
  - UTERINE CERVICAL LACERATION [None]
